FAERS Safety Report 19361871 (Version 4)
Quarter: 2021Q3

REPORT INFORMATION
  Report Type: Report from Study
  Country: None (occurrence: IL)
  Receive Date: 20210603
  Receipt Date: 20210727
  Transmission Date: 20211014
  Serious: Yes (Hospitalization)
  Sender: FDA-Public Use
  Company Number: IL-ABBVIE-21K-082-3865493-00

PATIENT
  Sex: Male

DRUGS (3)
  1. DUODOPA [Suspect]
     Active Substance: CARBIDOPA\LEVODOPA
     Dosage: MD 12ML, CD 3ML/HOUR, ED 1.5ML
     Route: 050
     Dates: start: 2021
  2. SINEMET [Concomitant]
     Active Substance: CARBIDOPA\LEVODOPA
     Indication: PRODUCT USED FOR UNKNOWN INDICATION
  3. DUODOPA [Suspect]
     Active Substance: CARBIDOPA\LEVODOPA
     Indication: PARKINSON^S DISEASE
     Dosage: MORNING DOSE 12ML, CONTINUOUS DOSE 3ML/HOUR, EXTRA DOSE 1.5ML?RECEIVED TITRATION ONLY
     Route: 050
     Dates: start: 20210317, end: 2021

REACTIONS (4)
  - Parkinson^s disease [Unknown]
  - Chest pain [Unknown]
  - Freezing phenomenon [Unknown]
  - On and off phenomenon [Recovering/Resolving]

NARRATIVE: CASE EVENT DATE: 2021
